FAERS Safety Report 7933833-5 (Version None)
Quarter: 2011Q4

REPORT INFORMATION
  Report Type: 
  Country: None (occurrence: None)
  Receive Date: 20111122
  Receipt Date: 20111111
  Transmission Date: 20120403
  Serious: Yes (Other)
  Sender: FDA-Public Use
  Company Number: PHFR2011GB006522

PATIENT
  Sex: Female

DRUGS (2)
  1. TEGRETOL [Suspect]
     Indication: CONVULSION
     Dosage: 200 MG, UNK
     Route: 048
  2. TEGRETOL [Suspect]
     Indication: CONVULSION

REACTIONS (4)
  - DRY THROAT [None]
  - NASAL DRYNESS [None]
  - CONVULSION [None]
  - THIRST [None]
